FAERS Safety Report 11805647 (Version 1)
Quarter: 2015Q4

REPORT INFORMATION
  Report Type: Spontaneous
  Country: DE (occurrence: DE)
  Receive Date: 20151207
  Receipt Date: 20151207
  Transmission Date: 20160305
  Serious: Yes (Other)
  Sender: FDA-Public Use
  Company Number: DE-CIPLA LTD.-2015DE08991

PATIENT

DRUGS (3)
  1. TOPOTECAN [Suspect]
     Active Substance: TOPOTECAN\TOPOTECAN HYDROCHLORIDE
     Indication: ADRENAL ADENOMA
     Dosage: 0.75 MG/M2, QD (DAYS 1-5)
     Route: 042
  2. CYCLOPHOSPHAMIDE. [Suspect]
     Active Substance: CYCLOPHOSPHAMIDE
     Indication: ADRENAL ADENOMA
     Dosage: 250 MG/M2, QD (DAYS 1-5)
     Route: 042
  3. VINORELBINE [Suspect]
     Active Substance: VINORELBINE\VINORELBINE TARTRATE
     Indication: ADRENAL ADENOMA
     Dosage: 30 MG/M2/D, D1 PLUS D8 I.V. (MAX 60 MG ABS./D; Q3W) AS A CONSOLIDATION THERAPY
     Route: 042

REACTIONS (12)
  - Fatigue [Recovered/Resolved]
  - Autonomic neuropathy [Recovered/Resolved]
  - Bone marrow failure [Recovered/Resolved]
  - Myalgia [Recovered/Resolved]
  - Haematotoxicity [Recovered/Resolved]
  - Vomiting [Recovered/Resolved]
  - Decreased appetite [Recovered/Resolved]
  - Arthralgia [Recovered/Resolved]
  - Pancytopenia [Recovering/Resolving]
  - Constipation [Recovered/Resolved]
  - Eastern Cooperative Oncology Group performance status worsened [Recovered/Resolved]
  - Febrile neutropenia [Recovered/Resolved]
